FAERS Safety Report 5049143-2 (Version None)
Quarter: 2006Q3

REPORT INFORMATION
  Report Type: 
  Country: None (occurrence: None)
  Receive Date: 20060712
  Receipt Date: 20060327
  Transmission Date: 20061208
  Serious: No
  Sender: FDA-Public Use
  Company Number: US-GLAXOSMITHKLINE-A0599176A

PATIENT
  Age: 53 Year
  Sex: Male

DRUGS (4)
  1. IMITREX [Suspect]
     Indication: MIGRAINE
     Route: 048
     Dates: start: 19950101
  2. TYLENOL W/ CODEINE NO. 3 [Concomitant]
     Dosage: 100MG AS REQUIRED
  3. TOPROL-XL [Concomitant]
  4. ORPHENADRINE [Concomitant]
     Indication: BRUXISM

REACTIONS (4)
  - BLOOD PRESSURE INCREASED [None]
  - HEADACHE [None]
  - OVERDOSE [None]
  - THERAPEUTIC RESPONSE DECREASED [None]
